FAERS Safety Report 24309943 (Version 3)
Quarter: 2024Q3

REPORT INFORMATION
  Report Type: Spontaneous
  Country: US (occurrence: US)
  Receive Date: 20240912
  Receipt Date: 20240918
  Transmission Date: 20241017
  Serious: No
  Sender: HETERO
  Company Number: US-HETERO-HET2024US02844

PATIENT
  Age: 86 Year
  Sex: Male
  Weight: 70.3 kg

DRUGS (1)
  1. LOSARTAN [Suspect]
     Active Substance: LOSARTAN\LOSARTAN POTASSIUM
     Indication: Hypertension
     Dosage: UNK, Q.H.S.
     Route: 048
     Dates: start: 20240820

REACTIONS (1)
  - Dysgeusia [Unknown]

NARRATIVE: CASE EVENT DATE: 20240820
